FAERS Safety Report 9181788 (Version 1)
Quarter: 2013Q1

REPORT INFORMATION
  Report Type: Spontaneous
  Country: FR (occurrence: FR)
  Receive Date: 20130322
  Receipt Date: 20130322
  Transmission Date: 20140127
  Serious: Yes (Hospitalization, Other)
  Sender: FDA-Public Use
  Company Number: FR-PFIZER INC-2013090137

PATIENT
  Age: 81 Year
  Sex: Female

DRUGS (1)
  1. TAHOR [Suspect]
     Dosage: 10 MG, DAILY

REACTIONS (4)
  - Monoplegia [Recovered/Resolved]
  - Malaise [Recovered/Resolved]
  - Dizziness [Recovered/Resolved]
  - Muscular weakness [Not Recovered/Not Resolved]
